FAERS Safety Report 9000988 (Version 1)
Quarter: 2013Q1

REPORT INFORMATION
  Report Type: Spontaneous
  Country: US (occurrence: None)
  Receive Date: 20130103
  Receipt Date: 20130103
  Transmission Date: 20140127
  Serious: Yes (Hospitalization)
  Sender: FDA-Public Use
  Company Number: None

PATIENT
  Age: 72 Year
  Sex: Male
  Weight: 80.1 kg

DRUGS (9)
  1. DASATINIB [Suspect]
     Indication: ACUTE MYELOID LEUKAEMIA
     Route: 048
     Dates: start: 20121220, end: 20121231
  2. DASATINIB [Suspect]
     Route: 048
     Dates: start: 20121120, end: 20121231
  3. ACYCLOVIR [Concomitant]
  4. ALLOPURINOL [Concomitant]
  5. AMLODIPINE [Concomitant]
  6. FAMOTIDINE [Concomitant]
  7. LORAZEPAM [Concomitant]
  8. METOPROLOL TARTRATE [Concomitant]
  9. ONDANSETRON [Concomitant]

REACTIONS (7)
  - Treatment noncompliance [None]
  - Leukocytosis [None]
  - Incorrect dose administered [None]
  - Leukaemia [None]
  - Malignant neoplasm progression [None]
  - Upper respiratory tract infection [None]
  - Influenza A virus test positive [None]
